FAERS Safety Report 7651898 (Version 6)
Quarter: 2014Q2

REPORT INFORMATION
  Report Type: Spontaneous
  Country: JP (occurrence: JP)
  Receive Date: 20101101
  Receipt Date: 20140411
  Transmission Date: 20141212
  Serious: Yes (Death, Life-Threatening, Hospitalization, Other)
  Sender: FDA-Public Use
  Company Number: JP-PFIZER INC-2010117065

PATIENT
  Age: 74 Year
  Sex: Male

DRUGS (3)
  1. AZULFIDINE EN [Suspect]
     Indication: RHEUMATOID ARTHRITIS
     Dosage: 500 MG, 2X/DAY
     Route: 048
     Dates: start: 20100520, end: 20100812
  2. RHEUMATREX [Suspect]
     Indication: RHEUMATOID ARTHRITIS
     Dosage: 4 MG, WEEKLY
     Dates: start: 200706, end: 2010
  3. RHEUMATREX [Suspect]
     Dosage: 8 MG, WEEKLY
     Route: 048
     Dates: start: 2010, end: 20100812

REACTIONS (6)
  - Oesophageal ulcer [Fatal]
  - Shock haemorrhagic [Fatal]
  - Aplastic anaemia [Fatal]
  - C-reactive protein increased [Unknown]
  - White blood cell count decreased [Unknown]
  - Platelet count decreased [Unknown]
